FAERS Safety Report 8005138-8 (Version None)
Quarter: 2011Q4

REPORT INFORMATION
  Report Type: 
  Country: None (occurrence: None)
  Receive Date: 20111223
  Receipt Date: 20111215
  Transmission Date: 20120403
  Serious: Yes (Other)
  Sender: FDA-Public Use
  Company Number: PHHY2011FR109702

PATIENT
  Sex: Male

DRUGS (11)
  1. OMIX [Concomitant]
  2. ZOMETA [Suspect]
     Dosage: 1 DF, MONTHLY
     Dates: start: 20100111, end: 20100601
  3. ZOMETA [Suspect]
     Dosage: 1 DF, QMO
     Dates: start: 20090101, end: 20090601
  4. IMOVANE [Concomitant]
  5. AVASTIN [Suspect]
     Dosage: UNK UKN, UNK
     Dates: start: 20110823
  6. NEXAVAR [Suspect]
     Dosage: 200 MG, BID
     Dates: start: 20080701
  7. NEXAVAR [Suspect]
     Dosage: 400 MG, BID
     Dates: end: 20110801
  8. LEXOMIL [Concomitant]
  9. AVODART [Concomitant]
  10. TRAMADOL HCL [Concomitant]
  11. LEVOTHYROXINE SODIUM [Concomitant]

REACTIONS (4)
  - OSTEONECROSIS OF JAW [None]
  - EXPOSED BONE IN JAW [None]
  - IMPAIRED HEALING [None]
  - DRUG TOLERANCE [None]
